FAERS Safety Report 19844215 (Version 2)
Quarter: 2021Q3

REPORT INFORMATION
  Report Type: Report from Study
  Country: None (occurrence: DE)
  Receive Date: 20210916
  Receipt Date: 20210920
  Transmission Date: 20211014
  Serious: Yes (Hospitalization)
  Sender: FDA-Public Use
  Company Number: DE-ABBVIE-21K-062-4079065-00

PATIENT
  Age: 30 Year
  Sex: Male
  Weight: 65 kg

DRUGS (8)
  1. VIGANTOL [Concomitant]
     Indication: VITAMIN SUPPLEMENTATION
     Route: 048
     Dates: start: 201710
  2. SAB SIMPLEX [Concomitant]
     Indication: COLITIS ULCERATIVE
     Dosage: AS REQUIRED
     Route: 048
     Dates: start: 20190501
  3. STELARA [Concomitant]
     Active Substance: USTEKINUMAB
     Indication: COLITIS ULCERATIVE
     Route: 042
     Dates: start: 20200114, end: 20200114
  4. HUMIRA [Suspect]
     Active Substance: ADALIMUMAB
     Indication: COLITIS ULCERATIVE
     Route: 058
     Dates: start: 20180308, end: 20180701
  5. LOPERAMID [Concomitant]
     Active Substance: LOPERAMIDE
     Indication: COLITIS ULCERATIVE
     Dosage: AS REQUIRED
     Route: 048
     Dates: start: 201702
  6. MEZAVANT [Concomitant]
     Active Substance: MESALAMINE
     Indication: COLITIS ULCERATIVE
     Route: 048
     Dates: start: 201902
  7. STELARA [Concomitant]
     Active Substance: USTEKINUMAB
     Dosage: ALL 8 WEEKS
     Route: 058
     Dates: start: 20200313
  8. PANTOPRAZOL [Concomitant]
     Active Substance: PANTOPRAZOLE SODIUM
     Indication: PROPHYLAXIS
     Route: 048
     Dates: start: 2015

REACTIONS (1)
  - Anastomotic stenosis [Recovered/Resolved]

NARRATIVE: CASE EVENT DATE: 20210910
